FAERS Safety Report 12450809 (Version 1)
Quarter: 2016Q2

REPORT INFORMATION
  Report Type: Spontaneous
  Country: BR (occurrence: BR)
  Receive Date: 20160609
  Receipt Date: 20160609
  Transmission Date: 20160815
  Serious: Yes (Other)
  Sender: FDA-Public Use
  Company Number: PHHY2016BR078436

PATIENT
  Sex: Female
  Weight: 61 kg

DRUGS (1)
  1. DIOVAN [Suspect]
     Active Substance: VALSARTAN
     Indication: HYPERTENSION
     Dosage: 1 DF, BID (1 IN THE MORNING AND 1 AT NIGHT)
     Route: 048

REACTIONS (6)
  - Parkinson^s disease [Unknown]
  - Heart rate increased [Unknown]
  - Anxiety [Recovering/Resolving]
  - Aphonia psychogenic [Unknown]
  - Nervousness [Unknown]
  - Abasia [Unknown]
